FAERS Safety Report 15500900 (Version 3)
Quarter: 2019Q1

REPORT INFORMATION
  Report Type: Spontaneous
  Country: US (occurrence: US)
  Receive Date: 20181015
  Receipt Date: 20190115
  Transmission Date: 20190417
  Serious: Yes (Other)
  Sender: FDA-Public Use
  Company Number: US-IMPAX LABORATORIES, INC-2018-IPXL-03378

PATIENT
  Sex: Female

DRUGS (1)
  1. RYTARY [Suspect]
     Active Substance: CARBIDOPA\LEVODOPA
     Indication: PARKINSON^S DISEASE
     Dosage: 36.25/145 MG, TWO CAPSULES, THREE TIMES A DAY
     Route: 065
     Dates: start: 20150701, end: 20150711

REACTIONS (2)
  - Product substitution issue [Unknown]
  - Parkinson^s disease psychosis [Recovered/Resolved]

NARRATIVE: CASE EVENT DATE: 201507
